FAERS Safety Report 8574890-5 (Version None)
Quarter: 2012Q3

REPORT INFORMATION
  Report Type: 
  Country: None (occurrence: None)
  Receive Date: 20120807
  Receipt Date: 20120717
  Transmission Date: 20120928
  Serious: Yes (Hospitalization, Other)
  Sender: FDA-Public Use
  Company Number: PT-BAYER-2012-065994

PATIENT
  Age: 22 Year
  Sex: Female

DRUGS (2)
  1. ASPIRIN [Suspect]
  2. IBUPROFEN [Suspect]
     Indication: HEADACHE
     Dosage: 1 DF, ONCE

REACTIONS (5)
  - KOUNIS SYNDROME [None]
  - INTRACARDIAC THROMBUS [None]
  - MYOCARDIAL INFARCTION [None]
  - ANGIOEDEMA [None]
  - CARDIAC ANEURYSM [None]
